FAERS Safety Report 8223079-8 (Version None)
Quarter: 2012Q1

REPORT INFORMATION
  Report Type: 
  Country: None (occurrence: None)
  Receive Date: 20120321
  Receipt Date: 20120312
  Transmission Date: 20120608
  Serious: Yes (Hospitalization)
  Sender: FDA-Public Use
  Company Number: DE-BIOGENIDEC-2012BI009006

PATIENT
  Age: 38 Year
  Sex: Female
  Weight: 71 kg

DRUGS (2)
  1. AVONEX [Suspect]
     Indication: MULTIPLE SCLEROSIS
     Route: 030
     Dates: start: 20110601, end: 20120102
  2. DESMIN [Concomitant]
     Indication: CONTRACEPTION
     Dates: end: 20120104

REACTIONS (8)
  - YELLOW SKIN [None]
  - BILIARY DILATATION [None]
  - ALANINE AMINOTRANSFERASE INCREASED [None]
  - ASPARTATE AMINOTRANSFERASE INCREASED [None]
  - GAMMA-GLUTAMYLTRANSFERASE INCREASED [None]
  - SCLERAL DISCOLOURATION [None]
  - BLOOD BILIRUBIN INCREASED [None]
  - PRURITUS GENERALISED [None]
